FAERS Safety Report 5298790-1 (Version None)
Quarter: 2007Q2

REPORT INFORMATION
  Report Type: 
  Country: None (occurrence: None)
  Receive Date: 20070410
  Receipt Date: 20070327
  Transmission Date: 20071010
  Serious: Yes (Hospitalization)
  Sender: FDA-Public Use
  Company Number: 2007BI007109

PATIENT
  Age: 25 Year
  Sex: Female

DRUGS (12)
  1. NATALIZUMAB [Suspect]
     Indication: MULTIPLE SCLEROSIS
     Dosage: IV
     Route: 042
     Dates: start: 20070111
  2. GABAPENTIN [Concomitant]
  3. BACLOFEN [Concomitant]
  4. FLEXERIL [Concomitant]
  5. OMEPRAZOLE [Concomitant]
  6. WARFARIN [Concomitant]
  7. SERTRALINE [Concomitant]
  8. MORPHINE [Concomitant]
  9. IBUPROFEN [Concomitant]
  10. DIAZEPAM [Concomitant]
  11. CYPROHEPTADINE HCL [Concomitant]
  12. ALBUTEROL [Concomitant]

REACTIONS (21)
  - ABDOMINAL DISCOMFORT [None]
  - ALANINE AMINOTRANSFERASE INCREASED [None]
  - ASPARTATE AMINOTRANSFERASE INCREASED [None]
  - BLOOD BICARBONATE DECREASED [None]
  - BLOOD CREATININE INCREASED [None]
  - BLOOD GLUCOSE INCREASED [None]
  - BLOOD LACTIC ACID INCREASED [None]
  - BLOOD PH DECREASED [None]
  - CARDIOPULMONARY FAILURE [None]
  - DIARRHOEA [None]
  - DRUG TOXICITY [None]
  - FIBRIN D DIMER INCREASED [None]
  - HAEMATOCRIT DECREASED [None]
  - HEPATIC FUNCTION ABNORMAL [None]
  - INTERNATIONAL NORMALISED RATIO INCREASED [None]
  - LUNG INJURY [None]
  - MULTIPLE SCLEROSIS [None]
  - NAUSEA [None]
  - PNEUMONIA [None]
  - SEPTIC SHOCK [None]
  - VOMITING [None]
